FAERS Safety Report 15823526 (Version 1)
Quarter: 2019Q1

REPORT INFORMATION
  Report Type: Spontaneous
  Country: RO (occurrence: RO)
  Receive Date: 20190114
  Receipt Date: 20190114
  Transmission Date: 20190417
  Serious: Yes (Hospitalization, Other)
  Sender: FDA-Public Use
  Company Number: PHHY2018RO074556

PATIENT
  Age: 35 Year
  Sex: Male

DRUGS (31)
  1. OLANZAPINE. [Suspect]
     Active Substance: OLANZAPINE
     Indication: SCHIZOPHRENIA
     Dosage: 20 MG, QD
     Route: 065
     Dates: start: 2018
  2. OLANZAPINE. [Suspect]
     Active Substance: OLANZAPINE
     Dosage: 15 MG, QD
     Route: 065
     Dates: start: 20150526, end: 20180614
  3. PALIPERIDONE. [Suspect]
     Active Substance: PALIPERIDONE
     Dosage: 12 MG, QD
     Route: 065
     Dates: start: 20150615, end: 20150807
  4. SODIUM VALPROATE [Concomitant]
     Active Substance: VALPROATE SODIUM
     Indication: PRODUCT USED FOR UNKNOWN INDICATION
     Dosage: 300 MG, QD
     Route: 065
  5. LAMOTRIGINE. [Concomitant]
     Active Substance: LAMOTRIGINE
     Indication: PRODUCT USED FOR UNKNOWN INDICATION
     Dosage: 200 MG, QD
     Route: 065
  6. CLOZAPINE SANDOZ [Suspect]
     Active Substance: CLOZAPINE
     Dosage: 100 MG, QD
     Route: 048
     Dates: start: 2018
  7. CLOZAPINE SANDOZ [Suspect]
     Active Substance: CLOZAPINE
     Dosage: 25 MG, QD
     Route: 048
     Dates: start: 2018
  8. CLOZAPINE SANDOZ [Suspect]
     Active Substance: CLOZAPINE
     Dosage: 100 MG, QW
     Route: 048
     Dates: start: 2018
  9. SODIUM VALPROATE [Concomitant]
     Active Substance: VALPROATE SODIUM
     Dosage: 1500 MG, QD
     Route: 065
  10. AMISULPRID [Suspect]
     Active Substance: AMISULPRIDE
     Dosage: 800 MG, QD
     Route: 065
     Dates: start: 2018
  11. PALIPERIDONE. [Suspect]
     Active Substance: PALIPERIDONE
     Indication: PRODUCT USED FOR UNKNOWN INDICATION
     Dosage: 12 MG, QD
     Route: 065
     Dates: start: 20150615
  12. RISPERIDONE. [Concomitant]
     Active Substance: RISPERIDONE
     Dosage: 6 MG, QD
     Route: 065
     Dates: start: 20150615, end: 20150807
  13. CLOZAPINE SANDOZ [Suspect]
     Active Substance: CLOZAPINE
     Dosage: 500 MG, QD
     Route: 048
     Dates: start: 2018
  14. ZIPRASIDONE. [Concomitant]
     Active Substance: ZIPRASIDONE
     Indication: PRODUCT USED FOR UNKNOWN INDICATION
     Dosage: 80 MG, QD
     Route: 065
     Dates: start: 20150615, end: 20150807
  15. OLANZAPINE. [Suspect]
     Active Substance: OLANZAPINE
     Indication: NARCISSISTIC PERSONALITY DISORDER
     Dosage: 5 MG, QD
     Route: 065
  16. AMISULPRID [Suspect]
     Active Substance: AMISULPRIDE
     Dosage: 200 MG, QD
     Route: 065
     Dates: start: 2018
  17. PALIPERIDONE. [Suspect]
     Active Substance: PALIPERIDONE
     Dosage: 12.5 MG, QD
     Route: 065
  18. PALIPERIDONE. [Suspect]
     Active Substance: PALIPERIDONE
     Dosage: 9 MG, QD
     Route: 065
     Dates: start: 201510
  19. LAMOTRIGINE. [Concomitant]
     Active Substance: LAMOTRIGINE
     Dosage: 25 MG, QD
     Route: 065
  20. CLOZAPINE SANDOZ [Suspect]
     Active Substance: CLOZAPINE
     Indication: PSYCHOTIC DISORDER
     Dosage: 75 MG, QD
     Route: 048
     Dates: start: 2018
  21. CLOZAPINE SANDOZ [Suspect]
     Active Substance: CLOZAPINE
     Indication: SCHIZOPHRENIA
     Dosage: 25 MG, QW
     Route: 048
     Dates: start: 2018
  22. QUETIAPINE. [Suspect]
     Active Substance: QUETIAPINE
     Indication: NARCISSISTIC PERSONALITY DISORDER
     Dosage: 600 MG, QD
     Route: 065
     Dates: start: 20150416, end: 20150525
  23. ARIPIPRAZOLE. [Suspect]
     Active Substance: ARIPIPRAZOLE
     Indication: NARCISSISTIC PERSONALITY DISORDER
  24. PALIPERIDONE. [Suspect]
     Active Substance: PALIPERIDONE
     Dosage: 6 MG, QD
     Route: 065
     Dates: start: 201510
  25. RISPERIDONE. [Concomitant]
     Active Substance: RISPERIDONE
     Indication: PRODUCT USED FOR UNKNOWN INDICATION
     Dosage: 6 ML, QD
     Route: 065
     Dates: start: 2015
  26. ARIPIPRAZOLE. [Suspect]
     Active Substance: ARIPIPRAZOLE
     Indication: SCHIZOPHRENIA
     Dosage: 400 MG, QMO
     Route: 065
     Dates: start: 20150526, end: 20180614
  27. CLOZAPINE SANDOZ [Suspect]
     Active Substance: CLOZAPINE
     Dosage: 25 MG, QD
     Route: 048
     Dates: start: 20150615, end: 20150807
  28. CLOZAPINE SANDOZ [Suspect]
     Active Substance: CLOZAPINE
     Dosage: 500 MG, QD
     Route: 048
     Dates: start: 20180129
  29. QUETIAPINE. [Suspect]
     Active Substance: QUETIAPINE
     Indication: SCHIZOPHRENIA
  30. AMISULPRID [Suspect]
     Active Substance: AMISULPRIDE
     Indication: PRODUCT USED FOR UNKNOWN INDICATION
     Dosage: 400 MG, QD
     Route: 048
     Dates: start: 2018, end: 2018
  31. TRIHEXIFENIDILO [Concomitant]
     Indication: PRODUCT USED FOR UNKNOWN INDICATION
     Dosage: 6 MG, QD
     Route: 065

REACTIONS (13)
  - Gynaecomastia [Unknown]
  - Therapy non-responder [Unknown]
  - Neuroleptic malignant syndrome [Unknown]
  - Refusal of treatment by patient [Unknown]
  - Acute psychosis [Unknown]
  - Extrapyramidal disorder [Unknown]
  - Transaminases increased [Unknown]
  - Delusional perception [Recovering/Resolving]
  - Abnormal behaviour [Unknown]
  - Suspiciousness [Recovering/Resolving]
  - Computerised tomogram abnormal [Unknown]
  - Psychotic disorder [Unknown]
  - Skin abrasion [Unknown]

NARRATIVE: CASE EVENT DATE: 201507
